FAERS Safety Report 12781781 (Version 2)
Quarter: 2016Q4

REPORT INFORMATION
  Report Type: Spontaneous
  Country: CA (occurrence: CA)
  Receive Date: 20160926
  Receipt Date: 20161003
  Transmission Date: 20170207
  Serious: Yes (Life-Threatening, Hospitalization)
  Sender: FDA-Public Use
  Company Number: CA-ASTRAZENECA-2016SE98429

PATIENT
  Age: 44 Year
  Sex: Female
  Weight: 66.5 kg

DRUGS (12)
  1. GOSERELIN [Concomitant]
     Active Substance: GOSERELIN
     Dates: start: 20131023
  2. ABEMACICLIB CODE NOT BROKEN [Suspect]
     Active Substance: ABEMACICLIB
     Indication: BREAST CANCER
     Route: 048
     Dates: start: 20150702, end: 20160912
  3. LOPERAMIDE [Concomitant]
     Active Substance: LOPERAMIDE
     Dates: start: 20150717
  4. ALEVE [Concomitant]
     Active Substance: NAPROXEN SODIUM
     Dates: start: 201506
  5. BENYLIN [Concomitant]
     Active Substance: DIPHENHYDRAMINE HYDROCHLORIDE
     Dates: start: 20150702
  6. VOLTAREN [Concomitant]
     Active Substance: DICLOFENAC SODIUM
     Dates: start: 20150730
  7. ONDANSETRON [Concomitant]
     Active Substance: ONDANSETRON
     Dates: start: 20150706
  8. NAPROSYN [Concomitant]
     Active Substance: NAPROXEN
     Dates: start: 20150612
  9. CODEINE [Concomitant]
     Active Substance: CODEINE
     Dates: start: 20150612
  10. DENOSUMAB [Concomitant]
     Active Substance: DENOSUMAB
     Dates: start: 20150629
  11. FULVESTRANT [Suspect]
     Active Substance: FULVESTRANT
     Indication: BREAST CANCER
     Dosage: 500 MG, CYCLICAL
     Route: 030
     Dates: start: 20150702, end: 20160912
  12. TYLENOL [Concomitant]
     Active Substance: ACETAMINOPHEN
     Dates: start: 201510

REACTIONS (2)
  - Septic shock [Not Recovered/Not Resolved]
  - Pneumonia [Unknown]

NARRATIVE: CASE EVENT DATE: 20160914
